FAERS Safety Report 20748266 (Version 1)
Quarter: 2022Q2

REPORT INFORMATION
  Report Type: Report from Study
  Country: RU (occurrence: RU)
  Receive Date: 20220426
  Receipt Date: 20220426
  Transmission Date: 20220721
  Serious: Yes (Hospitalization, Other)
  Sender: FDA-Public Use
  Company Number: RU-CELGENE-RUS-20210801040

PATIENT
  Age: 32 Year
  Sex: Female

DRUGS (9)
  1. OZANIMOD [Suspect]
     Active Substance: OZANIMOD
     Indication: Relapsing multiple sclerosis
     Route: 048
     Dates: start: 20161115, end: 20210908
  2. ETHINYL ESTRADIOL\GESTODENE [Concomitant]
     Active Substance: ETHINYL ESTRADIOL\GESTODENE
     Indication: Contraception
     Dosage: 0.02-0.075 MILLIGRAM
     Route: 048
     Dates: start: 201505
  3. Fervex [Concomitant]
     Indication: Nasopharyngitis
     Dosage: 1 BAG DOSING UNIT
     Route: 065
     Dates: start: 20190402, end: 20190404
  4. KETOROLAC [Concomitant]
     Active Substance: KETOROLAC TROMETHAMINE
     Indication: Headache
     Dosage: 20 MILLIGRAM
     Route: 048
     Dates: start: 20191117, end: 20191118
  5. IBUPROFEN [Concomitant]
     Active Substance: IBUPROFEN
     Indication: Headache
     Dosage: 800 MILLIGRAM
     Route: 048
     Dates: start: 20200210, end: 20200211
  6. SOLU-MEDROL [Concomitant]
     Active Substance: METHYLPREDNISOLONE SODIUM SUCCINATE
     Indication: Disease progression
     Dosage: 1000 MILLIGRAM
     Route: 042
     Dates: start: 20200318, end: 20200322
  7. SOLU-MEDROL [Concomitant]
     Active Substance: METHYLPREDNISOLONE SODIUM SUCCINATE
     Dosage: 1000 MILLIGRAM
     Route: 042
     Dates: start: 20210210, end: 20210214
  8. NIMESULIDE [Concomitant]
     Active Substance: NIMESULIDE
     Indication: Back pain
     Dosage: 200 MILLIGRAM
     Route: 048
     Dates: start: 20210503, end: 20210507
  9. DEXPANTHENOL [Concomitant]
     Active Substance: DEXPANTHENOL
     Indication: Cervix carcinoma
     Dosage: 100 MG, INTRAVAGINALNO.
     Dates: start: 20210721, end: 20210730

REACTIONS (1)
  - Cervix carcinoma [Recovered/Resolved]

NARRATIVE: CASE EVENT DATE: 20210616
